FAERS Safety Report 24966119 (Version 1)
Quarter: 2025Q1

REPORT INFORMATION
  Report Type: Spontaneous
  Country: FR (occurrence: FR)
  Receive Date: 20250213
  Receipt Date: 20250213
  Transmission Date: 20250409
  Serious: Yes (Other)
  Sender: FRESENIUS KABI
  Company Number: None

PATIENT
  Age: 38 Year
  Sex: Female

DRUGS (4)
  1. ACETAMINOPHEN [Suspect]
     Active Substance: ACETAMINOPHEN
     Indication: Pain
     Route: 042
     Dates: start: 20200319, end: 20200319
  2. CLOROTEKAL [Suspect]
     Active Substance: CHLOROPROCAINE HYDROCHLORIDE
     Indication: Spinal anaesthesia
     Route: 008
     Dates: start: 20200319, end: 20200319
  3. NEFOPAM HYDROCHLORIDE [Suspect]
     Active Substance: NEFOPAM HYDROCHLORIDE
     Indication: Pain
     Route: 042
     Dates: start: 20200319, end: 20200319
  4. DEXAMETHASONE [Suspect]
     Active Substance: DEXAMETHASONE
     Indication: Pain
     Route: 042
     Dates: start: 20200319, end: 20200319

REACTIONS (1)
  - Dissociative disorder [Recovered/Resolved]

NARRATIVE: CASE EVENT DATE: 20200319
